FAERS Safety Report 8376249-2 (Version None)
Quarter: 2012Q2

REPORT INFORMATION
  Report Type: 
  Country: None (occurrence: None)
  Receive Date: 20120522
  Receipt Date: 20120514
  Transmission Date: 20120825
  Serious: Yes (Other)
  Sender: FDA-Public Use
  Company Number: US-VERTEX PHARMACEUTICALS INC.-AE-2012-005316

PATIENT
  Sex: Male
  Weight: 77.634 kg

DRUGS (6)
  1. PROPRANOLOL [Concomitant]
     Indication: HYPERTENSION
     Route: 048
  2. PEGASYS [Concomitant]
     Route: 058
     Dates: start: 20120427
  3. RIBAVIRIN [Concomitant]
     Indication: HEPATITIS C
     Route: 048
     Dates: start: 20120316
  4. PEGASYS [Concomitant]
     Indication: HEPATITIS C
     Route: 058
     Dates: start: 20120316, end: 20120427
  5. INCIVEK [Suspect]
     Indication: HEPATITIS C
     Route: 048
     Dates: start: 20120316
  6. NEXIUM [Concomitant]
     Indication: GASTROOESOPHAGEAL REFLUX DISEASE
     Route: 048

REACTIONS (5)
  - WHITE BLOOD CELL COUNT DECREASED [None]
  - PRURITUS GENERALISED [None]
  - AMMONIA INCREASED [None]
  - PLATELET COUNT DECREASED [None]
  - ABNORMAL BEHAVIOUR [None]
